FAERS Safety Report 4714876-1 (Version None)
Quarter: 2005Q3

REPORT INFORMATION
  Report Type: 
  Country: None (occurrence: None)
  Receive Date: 20050715
  Receipt Date: 20050707
  Transmission Date: 20060218
  Serious: Yes (Death)
  Sender: FDA-Public Use
  Company Number: US-JNJFOC-20050701651

PATIENT
  Sex: Female
  Weight: 68.49 kg

DRUGS (9)
  1. INFLIXIMAB [Suspect]
     Indication: RHEUMATOID ARTHRITIS
     Route: 042
  2. NEXIUM [Concomitant]
  3. FOSAMAX [Concomitant]
  4. PRAVACHOL [Concomitant]
  5. METOPROLOL [Concomitant]
  6. WARFARIN [Concomitant]
  7. FUROSEMIDE [Concomitant]
  8. ACTOS [Concomitant]
  9. CALCIUM +D [Concomitant]

REACTIONS (1)
  - PANCREATIC CARCINOMA [None]
